FAERS Safety Report 14199001 (Version 2)
Quarter: 2017Q4

REPORT INFORMATION
  Report Type: Spontaneous
  Country: US (occurrence: US)
  Receive Date: 20171117
  Receipt Date: 20171130
  Transmission Date: 20180321
  Serious: Yes (Other)
  Sender: FDA-Public Use
  Company Number: US-AMGEN-USASP2017172295

PATIENT
  Age: 11 Year
  Sex: Male
  Weight: 59.7 kg

DRUGS (1)
  1. ENBREL [Suspect]
     Active Substance: ETANERCEPT
     Indication: JUVENILE IDIOPATHIC ARTHRITIS
     Dosage: 50 MG, QWK
     Route: 058
     Dates: start: 201701, end: 20171109

REACTIONS (4)
  - Tenosynovitis [Unknown]
  - Juvenile idiopathic arthritis [Unknown]
  - Drug effect incomplete [Unknown]
  - Bone erosion [Unknown]

NARRATIVE: CASE EVENT DATE: 2017
